FAERS Safety Report 4452413-X (Version None)
Quarter: 2004Q3

REPORT INFORMATION
  Report Type: 
  Country: None (occurrence: None)
  Receive Date: 20040915
  Receipt Date: 20040901
  Transmission Date: 20050211
  Serious: Yes (Hospitalization)
  Sender: FDA-Public Use
  Company Number: RENA-10964

PATIENT
  Age: 59 Year
  Sex: Male
  Weight: 54 kg

DRUGS (8)
  1. RENAGEL [Suspect]
     Indication: HYPERPHOSPHATAEMIA
     Dosage: 1.5 G TID PO
     Route: 048
     Dates: start: 20030723, end: 20040225
  2. RENAGEL [Suspect]
     Indication: HYPERPHOSPHATAEMIA
     Dosage: 0.5 G TID PO
     Route: 048
     Dates: start: 20040813
  3. CALCIUM CARBONATE [Concomitant]
  4. AMLODIPINE BESYLATE [Concomitant]
  5. CALCITRIOL [Concomitant]
  6. ALOSENN [Concomitant]
  7. FURSENNID [Concomitant]
  8. ZOLPIDEM TARTRATE [Concomitant]

REACTIONS (17)
  - ANOREXIA [None]
  - ASTHENIA [None]
  - BLOOD CREATINE PHOSPHOKINASE INCREASED [None]
  - BLOOD PRESSURE INCREASED [None]
  - C-REACTIVE PROTEIN INCREASED [None]
  - CONSTIPATION [None]
  - DIARRHOEA [None]
  - GASTRIC ULCER HAEMORRHAGE [None]
  - HAEMODIALYSIS [None]
  - HELICOBACTER PYLORI IDENTIFICATION TEST POSITIVE [None]
  - HEPATIC FUNCTION ABNORMAL [None]
  - HEPATOCELLULAR DAMAGE [None]
  - INSOMNIA [None]
  - MALAISE [None]
  - MUSCLE DISORDER [None]
  - MUSCULAR WEAKNESS [None]
  - NASOPHARYNGITIS [None]
